FAERS Safety Report 26184634 (Version 2)
Quarter: 2025Q4

REPORT INFORMATION
  Report Type: Spontaneous
  Country: US (occurrence: US)
  Receive Date: 20251222
  Receipt Date: 20251223
  Transmission Date: 20260117
  Serious: No
  Sender: JOHNSON AND JOHNSON
  Company Number: US-JNJFOC-20251228238

PATIENT
  Sex: Female

DRUGS (3)
  1. SPRAVATO [Suspect]
     Active Substance: ESKETAMINE
     Indication: Major depression
     Dates: start: 202505
  2. SPRAVATO [Suspect]
     Active Substance: ESKETAMINE
     Indication: Generalised anxiety disorder
  3. SPRAVATO [Suspect]
     Active Substance: ESKETAMINE
     Indication: Pelvic pain

REACTIONS (4)
  - Product quality issue [Unknown]
  - Product packaging issue [Unknown]
  - Drug ineffective [Unknown]
  - Off label use [Unknown]
